FAERS Safety Report 4351037-2 (Version None)
Quarter: 2004Q2

REPORT INFORMATION
  Report Type: 
  Country: None (occurrence: None)
  Receive Date: 20040427
  Receipt Date: 20020716
  Transmission Date: 20050107
  Serious: Yes (Hospitalization)
  Sender: FDA-Public Use
  Company Number: 2002CG01113

PATIENT
  Age: 76 Year
  Sex: Female

DRUGS (5)
  1. XYLOCAINE [Suspect]
     Dates: start: 20020527
  2. BETADINE [Suspect]
     Dates: start: 20020527
  3. NO MATCH [Suspect]
     Dates: start: 20020527
  4. BSS [Suspect]
     Dates: start: 20020527
  5. STERDEX [Suspect]
     Dates: start: 20020527

REACTIONS (5)
  - CATARACT OPERATION COMPLICATION [None]
  - ENDOPHTHALMITIS [None]
  - ENTEROCOCCAL INFECTION [None]
  - OFF LABEL USE [None]
  - POST PROCEDURAL COMPLICATION [None]
